FAERS Safety Report 10576908 (Version 1)
Quarter: 2014Q4

REPORT INFORMATION
  Report Type: Spontaneous
  Country: PL (occurrence: PL)
  Receive Date: 20141111
  Receipt Date: 20141111
  Transmission Date: 20150529
  Serious: Yes (Other)
  Sender: FDA-Public Use
  Company Number: PL-GILEAD-2014-0121923

PATIENT
  Age: 36 Year
  Sex: Male
  Weight: 80 kg

DRUGS (1)
  1. ATRIPLA [Suspect]
     Active Substance: EFAVIRENZ\EMTRICITABINE\TENOFOVIR DISOPROXIL FUMARATE
     Indication: HIV INFECTION
     Dosage: 1 DF, QD
     Route: 048
     Dates: start: 201106

REACTIONS (3)
  - Tinnitus [Recovering/Resolving]
  - Hearing disability [Recovering/Resolving]
  - Hypoacusis [Recovering/Resolving]

NARRATIVE: CASE EVENT DATE: 20140621
